FAERS Safety Report 18961717 (Version 1)
Quarter: 2021Q1

REPORT INFORMATION
  Report Type: Spontaneous
  Country: EG (occurrence: EG)
  Receive Date: 20210303
  Receipt Date: 20210303
  Transmission Date: 20210420
  Serious: Yes (Hospitalization, Other)
  Sender: FDA-Public Use
  Company Number: EG-NOVOPROD-791130

PATIENT
  Age: 720 Month
  Sex: Female
  Weight: 90 kg

DRUGS (1)
  1. MIXTARD 30 HM PENFILL [Suspect]
     Active Substance: INSULIN HUMAN
     Indication: DIABETES MELLITUS
     Dosage: USING 6YEARS AGO, DOSE MAY INCREASE OR DECREASE UPON BGL.
     Route: 058

REACTIONS (3)
  - Hip arthroplasty [Unknown]
  - Hyperglycaemia [Unknown]
  - Blood glucose fluctuation [Unknown]

NARRATIVE: CASE EVENT DATE: 20201005
